FAERS Safety Report 24031125 (Version 2)
Quarter: 2024Q3

REPORT INFORMATION
  Report Type: Report from Study
  Country: US (occurrence: US)
  Receive Date: 20240628
  Receipt Date: 20240823
  Transmission Date: 20241016
  Serious: Yes (Other)
  Sender: ABBVIE
  Company Number: US-ABBVIE-5817390

PATIENT
  Age: 58 Year
  Sex: Male

DRUGS (3)
  1. SKYRIZI [Suspect]
     Active Substance: RISANKIZUMAB-RZAA
     Indication: Psoriasis
     Route: 058
     Dates: start: 20210727
  2. SKYRIZI [Suspect]
     Active Substance: RISANKIZUMAB-RZAA
     Route: 058
     Dates: start: 20230129
  3. JARDIANCE [Suspect]
     Active Substance: EMPAGLIFLOZIN
     Indication: Glycosylated haemoglobin increased
     Route: 065

REACTIONS (6)
  - Carotid artery occlusion [Unknown]
  - Arterial repair [Not Recovered/Not Resolved]
  - Precancerous condition [Unknown]
  - Upper respiratory tract infection [Recovered/Resolved]
  - Procedural complication [Not Recovered/Not Resolved]
  - Jaw disorder [Unknown]

NARRATIVE: CASE EVENT DATE: 20240501
